FAERS Safety Report 15291898 (Version 1)
Quarter: 2018Q3

REPORT INFORMATION
  Report Type: Spontaneous
  Country: US (occurrence: US)
  Receive Date: 20180817
  Receipt Date: 20180817
  Transmission Date: 20181010
  Serious: Yes (Hospitalization)
  Sender: FDA-Public Use
  Company Number: US-VIFOR (INTERNATIONAL) INC.-VIT-2018-08105

PATIENT
  Age: 60 Year
  Sex: Female

DRUGS (5)
  1. SILDENAFIL. [Concomitant]
     Active Substance: SILDENAFIL
  2. TORASEMIDE [Concomitant]
     Active Substance: TORSEMIDE
  3. LETAIRIS [Concomitant]
     Active Substance: AMBRISENTAN
  4. ALDACTONE [Concomitant]
     Active Substance: SPIRONOLACTONE
     Indication: LIVER DISORDER
  5. VELTASSA [Suspect]
     Active Substance: PATIROMER
     Indication: BLOOD POTASSIUM INCREASED
     Dates: start: 2018, end: 201808

REACTIONS (2)
  - Renal disorder [Not Recovered/Not Resolved]
  - Shoulder operation [Recovered/Resolved]

NARRATIVE: CASE EVENT DATE: 201805
